FAERS Safety Report 10185420 (Version 1)
Quarter: 2014Q2

REPORT INFORMATION
  Report Type: Spontaneous
  Country: US (occurrence: None)
  Receive Date: 20140520
  Receipt Date: 20140520
  Transmission Date: 20141212
  Serious: Yes (Death)
  Sender: FDA-Public Use
  Company Number: None

PATIENT
  Age: 58 Year
  Sex: Male
  Weight: 69 kg

DRUGS (1)
  1. VERSED [Suspect]
     Indication: VENTRICULAR ARRHYTHMIA

REACTIONS (2)
  - Hypotension [None]
  - Bradycardia [None]
